FAERS Safety Report 12559966 (Version 1)
Quarter: 2016Q3

REPORT INFORMATION
  Report Type: Spontaneous
  Country: US (occurrence: US)
  Receive Date: 20160715
  Receipt Date: 20160715
  Transmission Date: 20161109
  Serious: No
  Sender: FDA-Public Use
  Company Number: US-JNJFOC-20160505975

PATIENT
  Sex: Female
  Weight: 55.34 kg

DRUGS (3)
  1. WOMENS ROGAINE UNSCENTED [Suspect]
     Active Substance: MINOXIDIL
     Indication: ALOPECIA
     Dosage: HALF CAPFULL
     Route: 061
     Dates: start: 20160503
  2. BETAMETHASONE. [Concomitant]
     Active Substance: BETAMETHASONE
     Indication: ERYTHEMA
     Route: 061
  3. WOMENS ROGAINE UNSCENTED [Suspect]
     Active Substance: MINOXIDIL
     Route: 061

REACTIONS (2)
  - Drug prescribing error [Unknown]
  - Contraindicated product administered [Unknown]
